FAERS Safety Report 8028721-2 (Version None)
Quarter: 2012Q1

REPORT INFORMATION
  Report Type: 
  Country: None (occurrence: None)
  Receive Date: 20120106
  Receipt Date: 20111230
  Transmission Date: 20120608
  Serious: Yes (Hospitalization, Disabling)
  Sender: FDA-Public Use
  Company Number: MW-GILEAD-2012-0048741

PATIENT
  Sex: Male

DRUGS (8)
  1. ADRIAMYCIN PFS [Concomitant]
     Dosage: UNK
     Dates: start: 20101001, end: 20101101
  2. CISPLATIN [Concomitant]
     Dosage: UNK
     Dates: start: 20110501, end: 20110601
  3. ADRIAMYCIN PFS [Concomitant]
     Indication: HEPATIC NEOPLASM MALIGNANT
     Dosage: UNK
     Dates: start: 20100801
  4. EMTRICITABINE/TENOFOVIR DISOPROXIL FUMARATE [Suspect]
     Indication: HIV INFECTION
     Dosage: UNK MG, BID
     Route: 048
     Dates: start: 20080820
  5. CISPLATIN [Concomitant]
     Indication: HEPATIC NEOPLASM MALIGNANT
     Dosage: UNK
     Dates: start: 20110101, end: 20110301
  6. SORAFENIB [Concomitant]
     Indication: HEPATIC NEOPLASM MALIGNANT
     Dosage: UNK UNK, QD
     Route: 048
     Dates: end: 20111103
  7. EFAVIRENZ [Suspect]
     Indication: HIV INFECTION
     Dosage: 600 MG, UNK
     Route: 048
     Dates: start: 20080820
  8. ADRIAMYCIN PFS [Concomitant]
     Dosage: UNK
     Dates: start: 20110101

REACTIONS (1)
  - DIPLEGIA [None]
